FAERS Safety Report 6073193-0 (Version None)
Quarter: 2009Q1

REPORT INFORMATION
  Report Type: 
  Country: None (occurrence: None)
  Receive Date: 20090206
  Receipt Date: 20090128
  Transmission Date: 20090719
  Serious: Yes (Hospitalization)
  Sender: FDA-Public Use
  Company Number: BAYER CASE ID: 200912449GPV

PATIENT
  Age: 81 Year
  Sex: Male

DRUGS (16)
  1. FLUDARABINE PHOSPHATE [Suspect]
     Indication: CHRONIC LYMPHOCYTIC LEUKAEMIA
     Dosage: 40 MG ORAL
     Route: 048
     Dates: start: 20081218, end: 20081222
  2. FLUDARABINE PHOSPHATE [Suspect]
     Indication: CHRONIC LYMPHOCYTIC LEUKAEMIA
     Dosage: 40 MG ORAL
     Route: 048
     Dates: start: 20090111, end: 20090115
  3. RITUXIMAB (RITUXIMAB) [Suspect]
     Indication: CHRONIC LYMPHOCYTIC LEUKAEMIA
     Dosage: 900 MG INTRAVENOUS
     Route: 042
     Dates: start: 20081218, end: 20081218
  4. RITUXIMAB (RITUXIMAB) [Suspect]
     Indication: CHRONIC LYMPHOCYTIC LEUKAEMIA
     Dosage: 900 MG INTRAVENOUS
     Route: 042
     Dates: start: 20090111, end: 20090111
  5. CYCLOPHOSPHAMIDE [Suspect]
     Indication: CHRONIC LYMPHOCYTIC LEUKAEMIA
     Dosage: 300 MG ORAL
     Route: 048
     Dates: start: 20081218, end: 20081222
  6. CYCLOPHOSPHAMIDE [Suspect]
     Indication: CHRONIC LYMPHOCYTIC LEUKAEMIA
     Dosage: 300 MG ORAL
     Route: 048
     Dates: start: 20090111, end: 20090115
  7. MIXTARD HUMAN 70/30 [Concomitant]
  8. METFORMIN HCL [Concomitant]
  9. DIAPRIDE (GLIMEPIRIDE) [Concomitant]
  10. IRBESARTAN [Concomitant]
  11. PERINDOPRIL ERBUMINE [Concomitant]
  12. AMLODIPINE [Concomitant]
  13. LAMIVUDINE [Concomitant]
  14. ALLOPURINOL [Concomitant]
  15. PANTOPRAZOLE SODIUM [Concomitant]
  16. ASPIRIN [Concomitant]

REACTIONS (2)
  - PYREXIA [None]
  - RENAL FAILURE ACUTE [None]
